FAERS Safety Report 24862938 (Version 1)
Quarter: 2025Q1

REPORT INFORMATION
  Report Type: Spontaneous
  Country: CN (occurrence: CN)
  Receive Date: 20250120
  Receipt Date: 20250120
  Transmission Date: 20250409
  Serious: Yes (Hospitalization, Other)
  Sender: BAXTER
  Company Number: None

PATIENT
  Age: 72 Year
  Sex: Female
  Weight: 50 kg

DRUGS (6)
  1. CYCLOPHOSPHAMIDE [Suspect]
     Active Substance: CYCLOPHOSPHAMIDE
     Indication: Drug therapy
     Route: 041
     Dates: start: 20241116, end: 20241116
  2. CYCLOPHOSPHAMIDE [Suspect]
     Active Substance: CYCLOPHOSPHAMIDE
     Indication: Adjuvant therapy
  3. PIRARUBICIN [Suspect]
     Active Substance: PIRARUBICIN
     Indication: Drug therapy
     Route: 041
     Dates: start: 20241116, end: 20241116
  4. PIRARUBICIN [Suspect]
     Active Substance: PIRARUBICIN
     Indication: Adjuvant therapy
  5. DEXRAZOXANE [Suspect]
     Active Substance: DEXRAZOXANE
     Indication: Drug therapy
     Route: 041
     Dates: start: 20241116, end: 20241116
  6. DEXRAZOXANE [Suspect]
     Active Substance: DEXRAZOXANE
     Indication: Adjuvant therapy

REACTIONS (9)
  - Condition aggravated [Unknown]
  - Metastases to lymph nodes [Unknown]
  - Hormone receptor positive breast cancer [Unknown]
  - Metastases to bone [Unknown]
  - Breast cancer stage IV [Unknown]
  - Myelosuppression [Recovering/Resolving]
  - Asthenia [Unknown]
  - Granulocyte count decreased [Unknown]
  - Discomfort [Unknown]

NARRATIVE: CASE EVENT DATE: 20241125
